FAERS Safety Report 11599727 (Version 1)
Quarter: 2015Q4

REPORT INFORMATION
  Report Type: Spontaneous
  Country: US (occurrence: US)
  Receive Date: 20151006
  Receipt Date: 20151006
  Transmission Date: 20160304
  Serious: Yes (Other)
  Sender: FDA-Public Use
  Company Number: US-JAZZ-2014-US-014057

PATIENT
  Age: 71 Year
  Sex: Male

DRUGS (7)
  1. XYREM [Suspect]
     Active Substance: SODIUM OXYBATE
     Indication: CATAPLEXY
     Dosage: 9 G, QD
     Route: 048
     Dates: start: 200601
  2. XYREM [Suspect]
     Active Substance: SODIUM OXYBATE
     Dosage: 4.5 G, BID
     Route: 048
     Dates: start: 200607
  3. NEURONTIN [Concomitant]
     Active Substance: GABAPENTIN
     Indication: NERVE INJURY
     Dosage: UNK
  4. XYREM [Suspect]
     Active Substance: SODIUM OXYBATE
     Indication: NARCOLEPSY
     Dosage: 4.5 G, BID
     Route: 048
     Dates: start: 200211
  5. VICODIN [Suspect]
     Active Substance: ACETAMINOPHEN\HYDROCODONE BITARTRATE
     Indication: IRRITABLE BOWEL SYNDROME
     Dosage: UNK
     Dates: end: 20140628
  6. VALIUM [Concomitant]
     Active Substance: DIAZEPAM
     Indication: ABNORMAL DREAMS
  7. VALIUM [Concomitant]
     Active Substance: DIAZEPAM
     Indication: NIGHTMARE

REACTIONS (9)
  - Road traffic accident [Recovered/Resolved]
  - Nightmare [Unknown]
  - Headache [Unknown]
  - Abnormal dreams [Unknown]
  - Irritable bowel syndrome [Recovering/Resolving]
  - Drug abuse [Recovered/Resolved]
  - Road traffic accident [Recovered/Resolved]
  - Nerve injury [Not Recovered/Not Resolved]
  - Loss of consciousness [Recovered/Resolved]

NARRATIVE: CASE EVENT DATE: 2010
